FAERS Safety Report 6603213-3 (Version None)
Quarter: 2010Q1

REPORT INFORMATION
  Report Type: 
  Country: None (occurrence: None)
  Receive Date: 20100219
  Receipt Date: 20100203
  Transmission Date: 20100710
  Serious: Yes (Other)
  Sender: FDA-Public Use
  Company Number: AUR-APL-2010-00354

PATIENT
  Age: 51 Year
  Sex: Female
  Weight: 60 kg

DRUGS (4)
  1. CITALOPRAM HYDROBROMIDE [Suspect]
     Indication: DEPRESSION
     Dosage: 20MG - UNK - ORAL
     Route: 048
     Dates: start: 20091224, end: 20091224
  2. RASAGILINE [Suspect]
     Indication: PARKINSON'S DISEASE
     Dosage: 1MG - UNK - ORAL
     Route: 048
     Dates: start: 20060208
  3. LEVOTHYROXINE [Concomitant]
  4. ROTIGOTINE [Concomitant]

REACTIONS (5)
  - CONFUSIONAL STATE [None]
  - DEPRESSION [None]
  - DYSSTASIA [None]
  - NEUROTOXICITY [None]
  - VOMITING [None]
